FAERS Safety Report 25968076 (Version 1)
Quarter: 2025Q4

REPORT INFORMATION
  Report Type: Report from Study
  Country: US (occurrence: US)
  Receive Date: 20251028
  Receipt Date: 20251028
  Transmission Date: 20260118
  Serious: Yes (Hospitalization)
  Sender: GILEAD
  Company Number: US-GILEAD-2025-0733594

PATIENT
  Age: 34 Year
  Sex: Male

DRUGS (1)
  1. SELADELPAR [Suspect]
     Active Substance: SELADELPAR
     Indication: Primary biliary cholangitis
     Dosage: 10 MG CAPSULE BY MOUTH ONCE DAILY
     Route: 048
     Dates: start: 20250509

REACTIONS (2)
  - Illness [Unknown]
  - Product use issue [Unknown]
